FAERS Safety Report 4750567-9 (Version None)
Quarter: 2005Q3

REPORT INFORMATION
  Report Type: 
  Country: None (occurrence: None)
  Receive Date: 20050823
  Receipt Date: 20050801
  Transmission Date: 20060218
  Serious: Yes (Death, Hospitalization)
  Sender: FDA-Public Use
  Company Number: US-MERCK-0508USA00439

PATIENT
  Age: 73 Year
  Sex: Male
  Weight: 73 kg

DRUGS (6)
  1. VIOXX [Suspect]
     Indication: ARTHRITIS
     Route: 048
     Dates: start: 19991101, end: 20030801
  2. VIOXX [Suspect]
     Indication: PAIN
     Route: 048
     Dates: start: 19991101, end: 20030801
  3. DIGOXIN [Concomitant]
     Route: 065
  4. TYLENOL [Concomitant]
     Route: 065
  5. CARDURA [Concomitant]
     Route: 065
  6. ADVIL [Concomitant]
     Route: 065

REACTIONS (8)
  - ATRIAL FIBRILLATION [None]
  - BRONCHITIS [None]
  - CARDIAC ARREST [None]
  - CORONARY ARTERY DISEASE [None]
  - DEHYDRATION [None]
  - DIARRHOEA [None]
  - MYOCARDIAL INFARCTION [None]
  - STOMACH DISCOMFORT [None]
